FAERS Safety Report 9046946 (Version 1)
Quarter: 2013Q1

REPORT INFORMATION
  Report Type: Spontaneous
  Country: US (occurrence: None)
  Receive Date: 20130129
  Receipt Date: 20130129
  Transmission Date: 20140127
  Serious: No
  Sender: FDA-Public Use
  Company Number: None

PATIENT
  Age: 5 Year
  Sex: Male
  Weight: 20.41 kg

DRUGS (1)
  1. SINGULAR [Suspect]
     Indication: ASTHMA
     Route: 048
     Dates: start: 20091031, end: 20121228

REACTIONS (6)
  - Abnormal behaviour [None]
  - Aggression [None]
  - Mental disorder [None]
  - Screaming [None]
  - Enuresis [None]
  - Feeling abnormal [None]
